FAERS Safety Report 16840063 (Version 5)
Quarter: 2020Q1

REPORT INFORMATION
  Report Type: Spontaneous
  Country: US (occurrence: US)
  Receive Date: 20190923
  Receipt Date: 20200131
  Transmission Date: 20200409
  Serious: No
  Sender: FDA-Public Use
  Company Number: US-PFIZER INC-2019411273

PATIENT
  Age: 68 Year
  Sex: Female
  Weight: 63 kg

DRUGS (2)
  1. IBRANCE [Suspect]
     Active Substance: PALBOCICLIB
     Indication: BREAST CANCER FEMALE
     Dosage: 125 MG, CYCLIC (DAILY FOR 21 DAYS, EVERY [Q] 28 DAYS)
     Route: 048
     Dates: start: 20190912, end: 2019
  2. IBRANCE [Suspect]
     Active Substance: PALBOCICLIB
     Dosage: 100 MG, CYCLIC (DAYS 1-21 Q 28 DAYS)
     Route: 048
     Dates: start: 2019

REACTIONS (15)
  - Decreased appetite [Unknown]
  - Diarrhoea [Unknown]
  - Abdominal pain [Unknown]
  - Lip dry [Unknown]
  - Tongue dry [Unknown]
  - Defaecation urgency [Unknown]
  - Headache [Unknown]
  - Oral pain [Unknown]
  - Rhinorrhoea [Unknown]
  - Nausea [Unknown]
  - Fatigue [Unknown]
  - Abdominal discomfort [Unknown]
  - Stomatitis [Unknown]
  - Dry mouth [Unknown]
  - Oral discomfort [Unknown]

NARRATIVE: CASE EVENT DATE: 2019
